FAERS Safety Report 14949797 (Version 1)
Quarter: 2018Q2

REPORT INFORMATION
  Report Type: Spontaneous
  Country: IT (occurrence: IT)
  Receive Date: 20180530
  Receipt Date: 20180530
  Transmission Date: 20180711
  Serious: Yes (Death)
  Sender: FDA-Public Use
  Company Number: IT-BAXTER-2018BAX016001

PATIENT
  Age: 71 Year
  Sex: Female

DRUGS (15)
  1. NOVANTRONE [Suspect]
     Active Substance: MITOXANTRONE HYDROCHLORIDE
     Indication: B-CELL LYMPHOMA
     Dosage: FOR DAY 1 (UNDER FND REGIMEN 4 CYCLES)
     Route: 065
  2. ADRIAMYCIN [Suspect]
     Active Substance: DOXORUBICIN HYDROCHLORIDE
     Dosage: 6 CYCLES, R-CHOP WITH LYPOSOMIAL DOXORUBICIN
     Route: 065
  3. VINCRISTINE [Suspect]
     Active Substance: VINCRISTINE
     Indication: B-CELL LYMPHOMA
     Dosage: 6 CYCLES, CHOP IN COMBINATION WITH 4 CYCLES OF RITUXIMAB
     Route: 065
  4. ENDOXAN BAXTER [Suspect]
     Active Substance: CYCLOPHOSPHAMIDE
     Indication: B-CELL LYMPHOMA
     Dosage: 6 CYCLES, CHOP REGIMEN IN COMBINATION WITH 4 CYCLES OF RITUXIMAB.
     Route: 065
  5. ADRIAMYCIN [Suspect]
     Active Substance: DOXORUBICIN HYDROCHLORIDE
     Indication: B-CELL LYMPHOMA
     Dosage: 6 CYCLES, CHOP IN COMBINATION WITH 4 CYCLES OF RITUXIMAB
     Route: 065
  6. PREDNISONE. [Suspect]
     Active Substance: PREDNISONE
     Indication: B-CELL LYMPHOMA
     Dosage: CHOP IN COMBINATION WITH 4 CYCLES OF RITUXIMAB, 6 CYCLES
     Route: 065
  7. ENDOXAN BAXTER [Suspect]
     Active Substance: CYCLOPHOSPHAMIDE
     Dosage: 6 CYCLES, R-CHOP WITH LYPOSOMIAL DOXORUBICIN
     Route: 065
  8. DEXAMETHASONE. [Suspect]
     Active Substance: DEXAMETHASONE
     Indication: B-CELL LYMPHOMA
     Dosage: FOR DAY 1-5 EVERY 4 WEEKS (UNDER FND REGIMEN 4 CYCLES)
     Route: 065
  9. RITUXIMAB. [Suspect]
     Active Substance: RITUXIMAB
     Dosage: 4 CYCLES, IN COMBINATION WITH 6 CYCLES OF CHOP.
     Route: 065
  10. VINCRISTINE [Suspect]
     Active Substance: VINCRISTINE
     Dosage: 6 CYCLES, R-CHOP WITH LYPOSOMIAL DOXORUBICIN
     Route: 065
  11. PREDNISONE. [Suspect]
     Active Substance: PREDNISONE
     Dosage: R-CHOP WITH LYPOSOMIAL DOXORUBICIN, 6 CYCLES
     Route: 065
  12. FLUDARABINE [Suspect]
     Active Substance: FLUDARABINE PHOSPHATE
     Indication: B-CELL LYMPHOMA
     Dosage: FOR DAY 1-3 (UNDER FND REGIMEN 4 CYCLES)
     Route: 065
  13. RITUXIMAB. [Suspect]
     Active Substance: RITUXIMAB
     Indication: B-CELL LYMPHOMA
     Dosage: 4 CYCLES, F-THERAPY. IN COMBINATION WITH 4 CYCLES OF FND REGIMEN.
     Route: 065
  14. RITUXIMAB. [Suspect]
     Active Substance: RITUXIMAB
     Dosage: 4 CYCLES, IN COMBINATION WITH 6 CYCLES OF R-CHOP WITH LYPOSOMIAL DOXORUBICIN
     Route: 065
  15. LYPOSOMIAL DOXORUBICIN [Suspect]
     Active Substance: DOXORUBICIN HYDROCHLORIDE
     Indication: B-CELL LYMPHOMA
     Dosage: IN COMBINATION WITH R-CHOP, 6 CYCLES
     Route: 065

REACTIONS (1)
  - Pyrexia [Fatal]
